FAERS Safety Report 26166081 (Version 1)
Quarter: 2025Q4

REPORT INFORMATION
  Report Type: Spontaneous
  Country: EU (occurrence: EU)
  Receive Date: 20251216
  Receipt Date: 20251216
  Transmission Date: 20260117
  Serious: Yes (Other)
  Sender: RANBAXY
  Company Number: EU-SUN PHARMACEUTICAL INDUSTRIES LTD-2025R1-532878

PATIENT
  Age: 67 Year
  Sex: Male

DRUGS (3)
  1. OCTREOTIDE [Suspect]
     Active Substance: OCTREOTIDE
     Indication: Product used for unknown indication
     Dosage: 0.3 MILLIGRAM EVERY 48 H
     Route: 058
  2. METHYLPREDNISOLONE [Suspect]
     Active Substance: METHYLPREDNISOLONE
     Indication: Product used for unknown indication
     Dosage: 60 MILLIGRAM, BID
     Route: 065
  3. LEVOSULPIRIDE [Suspect]
     Active Substance: LEVOSULPIRIDE
     Indication: Product used for unknown indication
     Dosage: 25 MILLIGRAM, BID
     Route: 065

REACTIONS (2)
  - Disease recurrence [Unknown]
  - Splenic infarction [Unknown]
